FAERS Safety Report 7861744-2 (Version None)
Quarter: 2011Q4

REPORT INFORMATION
  Report Type: 
  Country: None (occurrence: None)
  Receive Date: 20111027
  Receipt Date: 20111013
  Transmission Date: 20120403
  Serious: Yes (Other)
  Sender: FDA-Public Use
  Company Number: ZA-ROCHE-1004530

PATIENT
  Age: 60 Year
  Sex: Female

DRUGS (1)
  1. AVASTIN [Suspect]
     Indication: EYE HAEMORRHAGE
     Route: 050

REACTIONS (11)
  - CYANOPSIA [None]
  - VISION BLURRED [None]
  - CORNEAL ABRASION [None]
  - EYE IRRITATION [None]
  - MYDRIASIS [None]
  - CATARACT [None]
  - EYE SWELLING [None]
  - EYE PAIN [None]
  - EYE HAEMORRHAGE [None]
  - ABNORMAL SENSATION IN EYE [None]
  - TRANSMISSION OF AN INFECTIOUS AGENT VIA A MEDICINAL PRODUCT [None]
